FAERS Safety Report 16016766 (Version 1)
Quarter: 2019Q1

REPORT INFORMATION
  Report Type: Spontaneous
  Country: CA (occurrence: CA)
  Receive Date: 20190228
  Receipt Date: 20190228
  Transmission Date: 20190418
  Serious: Yes (Other)
  Sender: FDA-Public Use
  Company Number: CA-ALSI-201900086

PATIENT
  Age: 71 Year
  Sex: Female

DRUGS (1)
  1. OXYGEN. [Suspect]
     Active Substance: OXYGEN
     Indication: OXYGEN THERAPY
     Route: 055

REACTIONS (3)
  - Accidental underdose [Recovered/Resolved]
  - Device issue [Not Recovered/Not Resolved]
  - Oxygen saturation decreased [Recovered/Resolved]
